FAERS Safety Report 5821725-7 (Version None)
Quarter: 2008Q3

REPORT INFORMATION
  Report Type: 
  Country: None (occurrence: None)
  Receive Date: 20080721
  Receipt Date: 20080711
  Transmission Date: 20090109
  Serious: No
  Sender: FDA-Public Use
  Company Number: JUTA353-08

PATIENT
  Age: 74 Year
  Sex: Female

DRUGS (1)
  1. CITALO-Q 10 MG (CITALOPRAM) [Suspect]
     Indication: APHASIA
     Dosage: 10 MG ORAL
     Route: 048

REACTIONS (3)
  - ARRHYTHMIA [None]
  - DIZZINESS [None]
  - EPISTAXIS [None]
